FAERS Safety Report 6215957-6 (Version None)
Quarter: 2009Q2

REPORT INFORMATION
  Report Type: 
  Country: None (occurrence: None)
  Receive Date: 20090603
  Receipt Date: 20090521
  Transmission Date: 20091009
  Serious: No
  Sender: FDA-Public Use
  Company Number: 2009-197159-NL

PATIENT
  Age: 20 Year
  Sex: Female

DRUGS (2)
  1. ETONOGESTREL [Suspect]
     Indication: CONTRACEPTION
     Dosage: DF, SUBCUTANEOUS
     Route: 058
     Dates: start: 20080515, end: 20090430
  2. ETONOGESTREL [Suspect]

REACTIONS (3)
  - ABDOMINAL PAIN [None]
  - DYSPAREUNIA [None]
  - METRORRHAGIA [None]
